FAERS Safety Report 25484475 (Version 1)
Quarter: 2025Q2

REPORT INFORMATION
  Report Type: Spontaneous
  Country: US (occurrence: None)
  Receive Date: 20250626
  Receipt Date: 20250626
  Transmission Date: 20250717
  Serious: Yes (Death)
  Sender: FDA-CTU
  Company Number: None

PATIENT
  Age: 74 Year
  Sex: Female

DRUGS (2)
  1. PROLIA [Suspect]
     Active Substance: DENOSUMAB
     Indication: Senile osteoporosis
     Route: 058
  2. INGREZZA [Suspect]
     Active Substance: VALBENAZINE DITOSYLATE

REACTIONS (2)
  - Myocardial infarction [None]
  - Renal failure [None]

NARRATIVE: CASE EVENT DATE: 20250621
